FAERS Safety Report 25705024 (Version 1)
Quarter: 2025Q3

REPORT INFORMATION
  Report Type: Spontaneous
  Country: US (occurrence: None)
  Receive Date: 20250818
  Receipt Date: 20250818
  Transmission Date: 20251021
  Serious: Yes (Life-Threatening, Hospitalization, Other)
  Sender: FDA-CTU
  Company Number: None

PATIENT
  Age: 5 Year
  Sex: Female
  Weight: 16.7 kg

DRUGS (1)
  1. TAZVERIK [Suspect]
     Active Substance: TAZEMETOSTAT HYDROBROMIDE
     Indication: Atypical teratoid/rhabdoid tumour of CNS
     Dosage: FREQUENCY : TWICE A DAY;?
     Route: 048
     Dates: start: 20220526, end: 20250618

REACTIONS (3)
  - Thrombocytopenia [None]
  - Malignant pleural effusion [None]
  - Non-Hodgkin^s lymphoma [None]

NARRATIVE: CASE EVENT DATE: 20250708
